FAERS Safety Report 10954588 (Version 1)
Quarter: 2015Q1

REPORT INFORMATION
  Report Type: Spontaneous
  Country: US (occurrence: US)
  Receive Date: 20150325
  Receipt Date: 20150325
  Transmission Date: 20150721
  Serious: No
  Sender: FDA-Public Use
  Company Number: US-GLAXOSMITHKLINE-US2015038330

PATIENT
  Age: 70 Year
  Sex: Female

DRUGS (11)
  1. ANORO ELLIPTA [Suspect]
     Active Substance: UMECLIDINIUM BROMIDE\VILANTEROL TRIFENATATE
     Indication: CHRONIC OBSTRUCTIVE PULMONARY DISEASE
     Dosage: 1 PUFF(S), QD
     Route: 055
     Dates: start: 20150310
  2. BIOTIN [Concomitant]
     Active Substance: BIOTIN
  3. FISH OIL [Concomitant]
     Active Substance: FISH OIL
  4. METFORMIN [Concomitant]
     Active Substance: METFORMIN HYDROCHLORIDE
  5. ROBITUSSIN (GUAIFENESIN) [Concomitant]
     Active Substance: GUAIFENESIN
  6. CRESTOR [Concomitant]
     Active Substance: ROSUVASTATIN CALCIUM
  7. PREDNISONE. [Concomitant]
     Active Substance: PREDNISONE
  8. COQ10 [Concomitant]
     Active Substance: UBIDECARENONE
  9. LEVOTHYROXIN [Concomitant]
     Active Substance: LEVOTHYROXINE
  10. ASPIRIN (BABY) [Concomitant]
  11. GLUCOSAMINE [Concomitant]
     Active Substance: GLUCOSAMINE

REACTIONS (6)
  - Blood glucose increased [Unknown]
  - Therapeutic response decreased [Unknown]
  - Productive cough [Unknown]
  - Viral infection [Unknown]
  - Dyspnoea [Unknown]
  - Cough [Unknown]

NARRATIVE: CASE EVENT DATE: 201503
